FAERS Safety Report 4335428-1 (Version None)
Quarter: 2004Q2

REPORT INFORMATION
  Report Type: 
  Country: None (occurrence: None)
  Receive Date: 20040409
  Receipt Date: 20040407
  Transmission Date: 20050107
  Serious: Yes (Death)
  Sender: FDA-Public Use
  Company Number: ES-BRISTOL-MYERS SQUIBB COMPANY-12554010

PATIENT
  Age: 70 Year
  Sex: Male

DRUGS (4)
  1. PARAPLATIN [Suspect]
     Indication: NON-SMALL CELL LUNG CANCER
     Dosage: AUC 6  1ST CYCLE ON 17MAR04
     Route: 042
     Dates: start: 20040406, end: 20040406
  2. PACLITAXEL [Suspect]
     Indication: NON-SMALL CELL LUNG CANCER
     Dosage: 1ST CYCLE ON 17MAR04
     Dates: start: 20040406, end: 20040406
  3. TRANKIMAZIN [Concomitant]
  4. NSAID [Concomitant]

REACTIONS (2)
  - CARDIO-RESPIRATORY ARREST [None]
  - HYPERSENSITIVITY [None]
